FAERS Safety Report 9651964 (Version 1)
Quarter: 2013Q4

REPORT INFORMATION
  Report Type: Spontaneous
  Country: US (occurrence: US)
  Receive Date: 20131029
  Receipt Date: 20131029
  Transmission Date: 20140711
  Serious: Yes (Other)
  Sender: FDA-Public Use
  Company Number: US-AMGEN-USASP2013076009

PATIENT
  Age: 63 Year
  Sex: Female

DRUGS (2)
  1. ENBREL [Suspect]
     Indication: PSORIATIC ARTHROPATHY
     Dosage: UNK
     Route: 065
     Dates: start: 20031001
  2. ENBREL [Suspect]
     Indication: PSORIASIS

REACTIONS (3)
  - Breast cancer [Unknown]
  - Hepatitis B [Unknown]
  - Injection site bruising [Unknown]
